FAERS Safety Report 25835046 (Version 1)
Quarter: 2025Q3

REPORT INFORMATION
  Report Type: Spontaneous
  Country: JP (occurrence: JP)
  Receive Date: 20250923
  Receipt Date: 20250923
  Transmission Date: 20251020
  Serious: Yes (Other)
  Sender: ROCHE
  Company Number: JP-CHUGAI-2025029682

PATIENT
  Sex: Male

DRUGS (2)
  1. AVASTIN [Suspect]
     Active Substance: BEVACIZUMAB
     Indication: Hepatocellular carcinoma
     Route: 042
     Dates: start: 20230404, end: 20250814
  2. TECENTRIQ [Suspect]
     Active Substance: ATEZOLIZUMAB
     Indication: Hepatocellular carcinoma
     Route: 042
     Dates: start: 20230404, end: 20250814

REACTIONS (15)
  - Cataract [Unknown]
  - Protein urine present [Unknown]
  - Urine abnormality [Unknown]
  - C-reactive protein increased [Unknown]
  - Diabetes mellitus [Unknown]
  - Retinal haemorrhage [Unknown]
  - Macular degeneration [Unknown]
  - Gamma-glutamyltransferase increased [Unknown]
  - Blood thyroid stimulating hormone increased [Unknown]
  - Blood creatine phosphokinase increased [Unknown]
  - White blood cell count decreased [Unknown]
  - Neutrophil count decreased [Unknown]
  - Muscular weakness [Unknown]
  - Malaise [Unknown]
  - Diarrhoea [Unknown]

NARRATIVE: CASE EVENT DATE: 20250101
